FAERS Safety Report 6095852-6 (Version None)
Quarter: 2009Q1

REPORT INFORMATION
  Report Type: 
  Country: None (occurrence: None)
  Receive Date: 20090227
  Receipt Date: 20080627
  Transmission Date: 20090719
  Serious: No
  Sender: FDA-Public Use
  Company Number: A0735182A

PATIENT
  Age: 35 Year
  Sex: Female

DRUGS (3)
  1. LAMICTAL [Suspect]
     Dosage: 150MG PER DAY
     Route: 048
     Dates: start: 20080101
  2. YASMIN [Suspect]
     Dosage: 1TAB CYCLIC
     Route: 048
     Dates: start: 20080401
  3. YASMIN [Concomitant]

REACTIONS (4)
  - AFFECT LABILITY [None]
  - ANXIETY [None]
  - BREAST PAIN [None]
  - DEPRESSION [None]
